FAERS Safety Report 9018539 (Version 1)
Quarter: 2013Q1

REPORT INFORMATION
  Report Type: Spontaneous
  Country: US (occurrence: US)
  Receive Date: 20130118
  Receipt Date: 20130118
  Transmission Date: 20140127
  Serious: No
  Sender: FDA-Public Use
  Company Number: US-PFIZER INC-2013018768

PATIENT
  Age: 73 Year
  Sex: Female
  Weight: 69.84 kg

DRUGS (1)
  1. ADVIL PM [Suspect]
     Indication: SLEEP DISORDER
     Dosage: 400 MG, DAILY AT NIGHT (TAKING TWO 200 MG CAPSULES AT BED TIME)
     Route: 048
     Dates: start: 2012

REACTIONS (1)
  - Pruritus [Not Recovered/Not Resolved]
